FAERS Safety Report 17806259 (Version 1)
Quarter: 2020Q2

REPORT INFORMATION
  Report Type: Spontaneous
  Country: RU (occurrence: RU)
  Receive Date: 20200520
  Receipt Date: 20200520
  Transmission Date: 20200714
  Serious: Yes (Life-Threatening)
  Sender: FDA-Public Use
  Company Number: RU-TEVA-2020-RU-1237948

PATIENT
  Age: 58 Year
  Sex: Female
  Weight: 88 kg

DRUGS (11)
  1. OMEZ [Concomitant]
     Active Substance: OMEPRAZOLE
     Indication: PROPHYLAXIS
     Route: 048
     Dates: start: 20160220, end: 20160319
  2. INDAPAMIDE. [Concomitant]
     Active Substance: INDAPAMIDE
     Indication: HYPERTENSION
     Route: 048
     Dates: start: 20160224, end: 20160319
  3. VANCOMYCIN [Suspect]
     Active Substance: VANCOMYCIN
     Indication: FEBRILE NEUTROPENIA
  4. AMLODIPINE [Concomitant]
     Active Substance: AMLODIPINE BESYLATE
     Indication: HYPERTENSION
     Route: 048
     Dates: start: 20160304, end: 20160319
  5. VANCOMYCIN [Suspect]
     Active Substance: VANCOMYCIN
     Indication: AGRANULOCYTOSIS
     Dosage: 2000 MILLIGRAM DAILY; THE DOSE THAT CAUSED THE AE - 26000 MG
     Route: 042
     Dates: start: 20160305, end: 20160319
  6. CILASPEN [Suspect]
     Active Substance: CILASTATIN SODIUM\IMIPENEM
     Indication: AGRANULOCYTOSIS
     Dosage: 2000 MILLIGRAM DAILY; THE DOSE THAT CAUSED THE AE - 24000 MG
     Route: 042
     Dates: start: 20160306, end: 20160321
  7. ETAMSYLATE [Concomitant]
     Active Substance: ETHAMSYLATE
     Indication: HAEMORRHAGIC DISORDER
     Route: 042
     Dates: start: 20160220, end: 20160319
  8. SUMMAMED [Suspect]
     Active Substance: AZITHROMYCIN ANHYDROUS
     Indication: TONSILLITIS
     Dosage: 500 MILLIGRAM DAILY; THE DOSE THAT CAUSED THE AE - 3500 MG
     Route: 042
     Dates: start: 20160311, end: 20160317
  9. CILASPEN [Suspect]
     Active Substance: CILASTATIN SODIUM\IMIPENEM
     Indication: FEBRILE NEUTROPENIA
  10. LYSOBACT [Concomitant]
     Indication: TONSILLITIS
     Route: 048
     Dates: start: 20160312, end: 20160319
  11. ACICLOVIR [Concomitant]
     Active Substance: ACYCLOVIR
     Indication: EPSTEIN-BARR VIRUS INFECTION
     Route: 042
     Dates: start: 20160229, end: 20160319

REACTIONS (2)
  - Rash papular [Recovering/Resolving]
  - Angioedema [Recovering/Resolving]

NARRATIVE: CASE EVENT DATE: 20160317
